FAERS Safety Report 11689615 (Version 1)
Quarter: 2015Q4

REPORT INFORMATION
  Report Type: Spontaneous
  Country: CN (occurrence: CN)
  Receive Date: 20151102
  Receipt Date: 20151102
  Transmission Date: 20160304
  Serious: Yes (Other)
  Sender: FDA-Public Use
  Company Number: CN-PFIZER INC-2015368793

PATIENT

DRUGS (1)
  1. LIPITOR [Suspect]
     Active Substance: ATORVASTATIN CALCIUM
     Dosage: UNK
     Dates: start: 201510, end: 201510

REACTIONS (6)
  - Blood creatine phosphokinase increased [Recovered/Resolved]
  - Jaundice [Unknown]
  - Transaminases increased [Recovering/Resolving]
  - Myoglobin blood increased [Recovering/Resolving]
  - Muscular weakness [Unknown]
  - Ascites [Unknown]

NARRATIVE: CASE EVENT DATE: 201510
